FAERS Safety Report 10170599 (Version 1)
Quarter: 2014Q2

REPORT INFORMATION
  Report Type: Spontaneous
  Country: US (occurrence: US)
  Receive Date: 20140513
  Receipt Date: 20140513
  Transmission Date: 20141212
  Serious: No
  Sender: FDA-Public Use
  Company Number: US-009507513-1405USA005874

PATIENT
  Age: 20 Year
  Sex: Female
  Weight: 45.35 kg

DRUGS (1)
  1. IMPLANON [Suspect]
     Indication: CONTRACEPTION
     Dosage: FREQ: 3 YEARS, IMPLANT RIGHT ARM
     Route: 059
     Dates: start: 20121002

REACTIONS (2)
  - Toothache [Unknown]
  - Polymenorrhoea [Recovered/Resolved]
